FAERS Safety Report 11513029 (Version 1)
Quarter: 2015Q3

REPORT INFORMATION
  Report Type: Spontaneous
  Country: US (occurrence: US)
  Receive Date: 20150903
  Receipt Date: 20150903
  Transmission Date: 20151125
  Serious: No
  Sender: FDA-Public Use
  Company Number: US-ELI_LILLY_AND_COMPANY-US201209005825

PATIENT
  Age: 65 Year
  Sex: Female

DRUGS (2)
  1. CYMBALTA [Suspect]
     Active Substance: DULOXETINE HYDROCHLORIDE
     Indication: ANXIETY
     Dosage: 30 MG, EACH MORNING
  2. XANAX [Concomitant]
     Active Substance: ALPRAZOLAM

REACTIONS (4)
  - Insomnia [Unknown]
  - Anxiety [Unknown]
  - Crying [Unknown]
  - Feeling abnormal [Unknown]
